FAERS Safety Report 7550591 (Version 3)
Quarter: 2016Q1

REPORT INFORMATION
  Report Type: Spontaneous
  Country: FR (occurrence: FR)
  Receive Date: 20100823
  Receipt Date: 20160203
  Transmission Date: 20160526
  Serious: Yes (Hospitalization, Other)
  Sender: FDA-Public Use
  Company Number: FR-BRISTOL-MYERS SQUIBB COMPANY-15240617

PATIENT
  Age: 2 Day
  Sex: Male
  Weight: 5.5 kg

DRUGS (10)
  1. AMOXICILLIN TRIHYDRATE [Suspect]
     Active Substance: AMOXICILLIN
     Indication: PRODUCT USED FOR UNKNOWN INDICATION
     Dosage: UNK
     Route: 064
  2. ZOVIRAX [Concomitant]
     Active Substance: ACYCLOVIR
     Indication: HERPES SIMPLEX
     Dosage: 100 MG, QD
     Route: 048
     Dates: start: 20100724
  3. UVEDOSE [Suspect]
     Active Substance: CHOLECALCIFEROL
     Indication: PRODUCT USED FOR UNKNOWN INDICATION
     Dosage: UNK
     Route: 064
  4. POLARAMINE [Concomitant]
     Active Substance: DEXCHLORPHENIRAMINE MALEATE
     Indication: IMMUNISATION
     Dosage: UNK
     Route: 065
     Dates: start: 20100720, end: 20100724
  5. AMOXICILLIN+CLAVULANIC ACID [Suspect]
     Active Substance: AMOXICILLIN\CLAVULANIC ACID
     Indication: SUPERINFECTION
     Dosage: 1DF=100 MG/12.5 MG/ML(AMOXICILLIN/CLAVULANIC ACID)   1 INTAKE PER KG THREE TIMES DAILY
     Route: 064
     Dates: start: 20100726, end: 20100729
  6. BRISTOPEN [Suspect]
     Active Substance: OXACILLIN SODIUM
     Indication: ANTIBIOTIC PROPHYLAXIS
     Dosage: 275 MG, BID
     Route: 064
     Dates: start: 20100701, end: 20100719
  7. HELICIDINE [Suspect]
     Active Substance: ESCARGOT
     Indication: PRODUCT USED FOR UNKNOWN INDICATION
     Dosage: UNK
     Route: 064
     Dates: start: 20091102
  8. DOLIPRANE [Suspect]
     Active Substance: ACETAMINOPHEN
     Indication: PRODUCT USED FOR UNKNOWN INDICATION
     Dosage: UNK
     Route: 064
  9. NETROMYCIN [Suspect]
     Active Substance: NETILMICIN SULFATE
     Indication: SUPERINFECTION
     Route: 064
  10. PREVENAR [Concomitant]
     Active Substance: PNEUMOCOCCAL 7-VALENT CONJUGATE VACCINE (DIPHTHERIA CRM197 PROTEIN)
     Indication: PNEUMOCOCCAL IMMUNISATION
     Dosage: SECOND DOSE
     Route: 065

REACTIONS (3)
  - Eosinophilia [Not Recovered/Not Resolved]
  - Kaposi^s varicelliform eruption [Unknown]
  - Foetal exposure during pregnancy [Unknown]

NARRATIVE: CASE EVENT DATE: 20100316
